FAERS Safety Report 26092884 (Version 1)
Quarter: 2025Q4

REPORT INFORMATION
  Report Type: Spontaneous
  Country: IN (occurrence: IN)
  Receive Date: 20251126
  Receipt Date: 20251126
  Transmission Date: 20260117
  Serious: Yes (Other)
  Sender: MYLAN
  Company Number: IN-MYLANLABS-2025M1100398

PATIENT
  Age: 37 Year
  Sex: Female

DRUGS (20)
  1. GEMCITABINE [Suspect]
     Active Substance: GEMCITABINE
     Indication: Ovarian epithelial cancer
     Dosage: UNK (STARTED WITH DAY 1 AND DAY 15 PLANS)
  2. GEMCITABINE [Suspect]
     Active Substance: GEMCITABINE
     Dosage: UNK (STARTED WITH DAY 1 AND DAY 15 PLANS)
  3. GEMCITABINE [Suspect]
     Active Substance: GEMCITABINE
     Dosage: UNK (STARTED WITH DAY 1 AND DAY 15 PLANS)
     Route: 065
  4. GEMCITABINE [Suspect]
     Active Substance: GEMCITABINE
     Dosage: UNK (STARTED WITH DAY 1 AND DAY 15 PLANS)
     Route: 065
  5. GEMCITABINE [Suspect]
     Active Substance: GEMCITABINE
     Dosage: UNK (DOSE REDUCED)
  6. GEMCITABINE [Suspect]
     Active Substance: GEMCITABINE
     Dosage: UNK (DOSE REDUCED)
  7. GEMCITABINE [Suspect]
     Active Substance: GEMCITABINE
     Dosage: UNK (DOSE REDUCED)
     Route: 065
  8. GEMCITABINE [Suspect]
     Active Substance: GEMCITABINE
     Dosage: UNK (DOSE REDUCED)
     Route: 065
  9. CISPLATIN [Suspect]
     Active Substance: CISPLATIN
     Indication: Ovarian epithelial cancer
     Dosage: UNK (STARTED WITH DAY 1 AND DAY 15 PLANS)
  10. CISPLATIN [Suspect]
     Active Substance: CISPLATIN
     Dosage: UNK (STARTED WITH DAY 1 AND DAY 15 PLANS)
     Route: 065
  11. CISPLATIN [Suspect]
     Active Substance: CISPLATIN
     Dosage: UNK (STARTED WITH DAY 1 AND DAY 15 PLANS)
     Route: 065
  12. CISPLATIN [Suspect]
     Active Substance: CISPLATIN
     Dosage: UNK (STARTED WITH DAY 1 AND DAY 15 PLANS)
  13. ETOPOSIDE [Suspect]
     Active Substance: ETOPOSIDE
     Indication: Ovarian epithelial cancer
     Dosage: UNK, Q21D (FOR 1-5 DAYS, EVERY 21 DAYS)
  14. ETOPOSIDE [Suspect]
     Active Substance: ETOPOSIDE
     Dosage: UNK, Q21D (FOR 1-5 DAYS, EVERY 21 DAYS)
     Route: 048
  15. ETOPOSIDE [Suspect]
     Active Substance: ETOPOSIDE
     Dosage: UNK, Q21D (FOR 1-5 DAYS, EVERY 21 DAYS)
     Route: 048
  16. ETOPOSIDE [Suspect]
     Active Substance: ETOPOSIDE
     Dosage: UNK, Q21D (FOR 1-5 DAYS, EVERY 21 DAYS)
  17. CYCLOPHOSPHAMIDE [Suspect]
     Active Substance: CYCLOPHOSPHAMIDE
     Indication: Ovarian epithelial cancer
     Dosage: UNK, Q21D (FOR 1-5 DAYS, EVERY 21 DAYS)
  18. CYCLOPHOSPHAMIDE [Suspect]
     Active Substance: CYCLOPHOSPHAMIDE
     Dosage: UNK, Q21D (FOR 1-5 DAYS, EVERY 21 DAYS)
     Route: 048
  19. CYCLOPHOSPHAMIDE [Suspect]
     Active Substance: CYCLOPHOSPHAMIDE
     Dosage: UNK, Q21D (FOR 1-5 DAYS, EVERY 21 DAYS)
     Route: 048
  20. CYCLOPHOSPHAMIDE [Suspect]
     Active Substance: CYCLOPHOSPHAMIDE
     Dosage: UNK, Q21D (FOR 1-5 DAYS, EVERY 21 DAYS)

REACTIONS (3)
  - Thrombocytopenia [Unknown]
  - Drug ineffective [Unknown]
  - Disease progression [Unknown]
